FAERS Safety Report 7557510-8 (Version None)
Quarter: 2011Q2

REPORT INFORMATION
  Report Type: 
  Country: None (occurrence: None)
  Receive Date: 20110620
  Receipt Date: 20110606
  Transmission Date: 20111010
  Serious: Yes (Other)
  Sender: FDA-Public Use
  Company Number: CA-JNJFOC-20110607703

PATIENT
  Sex: Male
  Weight: 86 kg

DRUGS (10)
  1. UNKNOWN MEDICATION [Concomitant]
     Dosage: ^AETIW^ 5 MG 3 DAYS PRIOR
  2. PREDNISONE [Concomitant]
  3. CENTRUM MULTIVITAMINS [Concomitant]
  4. CALCIUM CARBONATE [Concomitant]
  5. REMICADE [Suspect]
     Route: 042
     Dates: start: 20110606
  6. REMICADE [Suspect]
     Indication: CROHN'S DISEASE
     Route: 042
     Dates: start: 20110408
  7. SOLU-CORTEF [Concomitant]
     Indication: PREMEDICATION
     Route: 042
  8. TYLENOL-500 [Concomitant]
     Indication: PREMEDICATION
     Route: 048
  9. BENADRYL [Concomitant]
     Indication: PREMEDICATION
     Route: 042
  10. VITAMIN D [Concomitant]

REACTIONS (7)
  - PARAESTHESIA [None]
  - NECK PAIN [None]
  - HYPERSENSITIVITY [None]
  - INFUSION RELATED REACTION [None]
  - SWELLING FACE [None]
  - MUSCULOSKELETAL CHEST PAIN [None]
  - URTICARIA [None]
